FAERS Safety Report 10911793 (Version 1)
Quarter: 2015Q1

REPORT INFORMATION
  Report Type: Spontaneous
  Country: US (occurrence: None)
  Receive Date: 20150310
  Receipt Date: 20150310
  Transmission Date: 20150721
  Serious: Yes (Other)
  Sender: FDA-Public Use
  Company Number: None

PATIENT
  Age: 44 Year
  Sex: Male
  Weight: 127.01 kg

DRUGS (1)
  1. AMPHETAMINE SALTS [Suspect]
     Active Substance: AMPHETAMINE ASPARTATE\AMPHETAMINE SULFATE\DEXTROAMPHETAMINE SACCHARATE\DEXTROAMPHETAMINE SULFATE
     Dosage: 20MG 1X DAY 15MG 1X DAY
     Route: 048
     Dates: start: 20150301, end: 20150309

REACTIONS (5)
  - Fatigue [None]
  - Tic [None]
  - Drug ineffective [None]
  - Product quality issue [None]
  - Ventricular extrasystoles [None]

NARRATIVE: CASE EVENT DATE: 20150301
